FAERS Safety Report 5956816-3 (Version None)
Quarter: 2008Q4

REPORT INFORMATION
  Report Type: 
  Country: None (occurrence: None)
  Receive Date: 20081114
  Receipt Date: 20081114
  Transmission Date: 20090506
  Serious: No
  Sender: FDA-Public Use
  Company Number: None

PATIENT
  Age: 34 Year
  Sex: Female
  Weight: 90.7194 kg

DRUGS (1)
  1. PROVIGIL [Suspect]
     Indication: NARCOLEPSY
     Dosage: 200 MG 1 A DAY
     Dates: start: 20081103, end: 20081113

REACTIONS (2)
  - DYSPNOEA [None]
  - YAWNING [None]
